FAERS Safety Report 4816071-4 (Version None)
Quarter: 2005Q4

REPORT INFORMATION
  Report Type: 
  Country: None (occurrence: None)
  Receive Date: 20051026
  Receipt Date: 20051014
  Transmission Date: 20060501
  Serious: Yes (Other)
  Sender: FDA-Public Use
  Company Number: 2005083441

PATIENT
  Sex: Female

DRUGS (2)
  1. NORVASC [Suspect]
     Indication: CARDIAC DISORDER
  2. MACROBID [Suspect]
     Indication: ILL-DEFINED DISORDER

REACTIONS (3)
  - MALAISE [None]
  - PERNICIOUS ANAEMIA [None]
  - TINNITUS [None]
